FAERS Safety Report 9354308 (Version 1)
Quarter: 2013Q2

REPORT INFORMATION
  Report Type: Spontaneous
  Country: US (occurrence: US)
  Receive Date: 20130618
  Receipt Date: 20130618
  Transmission Date: 20140414
  Serious: Yes (Hospitalization)
  Sender: FDA-Public Use
  Company Number: US-B.I. PHARMACEUTICALS,INC./RIDGEFIELD-2013-BI-17117BP

PATIENT
  Age: 79 Year
  Sex: Male
  Weight: 62 kg

DRUGS (1)
  1. COMBIVENT [Suspect]
     Indication: EMPHYSEMA
     Dosage: STRENGTH:18 MCG / 103 MCG; DAILY DOSE: 288MCG/1648MCG
     Route: 055
     Dates: start: 201210

REACTIONS (5)
  - Pneumonia [Not Recovered/Not Resolved]
  - Aspiration [Recovered/Resolved]
  - Upper gastrointestinal haemorrhage [Recovered/Resolved]
  - Respiratory failure [Recovered/Resolved]
  - Urinary tract infection [Recovered/Resolved]
